FAERS Safety Report 18693545 (Version 1)
Quarter: 2021Q1

REPORT INFORMATION
  Report Type: Spontaneous
  Country: US (occurrence: US)
  Receive Date: 20210104
  Receipt Date: 20210104
  Transmission Date: 20210419
  Serious: No
  Sender: FDA-Public Use
  Company Number: US-SA-2020SA373379

PATIENT

DRUGS (1)
  1. DUPIXENT [Suspect]
     Active Substance: DUPILUMAB
     Indication: DERMATITIS ATOPIC

REACTIONS (5)
  - Abdominal pain upper [Unknown]
  - Vitreous floaters [Unknown]
  - Treatment failure [Unknown]
  - Insomnia [Unknown]
  - Gastritis [Unknown]

NARRATIVE: CASE EVENT DATE: 20200511
